FAERS Safety Report 5382634-3 (Version None)
Quarter: 2007Q3

REPORT INFORMATION
  Report Type: 
  Country: None (occurrence: None)
  Receive Date: 20070710
  Receipt Date: 20070703
  Transmission Date: 20080115
  Serious: Yes (Hospitalization)
  Sender: FDA-Public Use
  Company Number: ZA-BRISTOL-MYERS SQUIBB COMPANY-13524095

PATIENT
  Age: 80 Year
  Sex: Male
  Weight: 85 kg

DRUGS (19)
  1. IRBESARTAN [Suspect]
     Indication: HYPERTENSION
     Dates: start: 20031201
  2. BLINDED: PLACEBO [Suspect]
     Indication: HYPERTENSION
     Dates: start: 20031201
  3. WARFARIN SODIUM [Suspect]
     Indication: PROPHYLAXIS
     Dates: start: 20031201
  4. ASPIRIN [Concomitant]
  5. DIGOXIN [Concomitant]
  6. DOBUTREX [Concomitant]
  7. NEXIUM [Concomitant]
  8. PERINDOPRIL ERBUMINE [Concomitant]
  9. LANOXIN [Concomitant]
  10. UNAT [Concomitant]
  11. CARLOC [Concomitant]
  12. LASIX [Concomitant]
  13. VOLUVEN [Concomitant]
  14. SOLU-CORTEF [Concomitant]
  15. MEROPENEM [Concomitant]
  16. TEICOPLANIN [Concomitant]
  17. BEZAFIBRATE [Concomitant]
  18. CALCIUM ACETATE [Concomitant]
  19. COLCHICINE [Concomitant]

REACTIONS (4)
  - ARTERIOVENOUS FISTULA OPERATION [None]
  - INGUINAL HERNIA REPAIR [None]
  - RENAL FAILURE [None]
  - SEPSIS [None]
